FAERS Safety Report 6070484-4 (Version None)
Quarter: 2009Q1

REPORT INFORMATION
  Report Type: 
  Country: None (occurrence: None)
  Receive Date: 20090209
  Receipt Date: 20090204
  Transmission Date: 20090719
  Serious: Yes (Hospitalization)
  Sender: FDA-Public Use
  Company Number: US-MERCK-0901USA04156

PATIENT
  Age: 6 Year
  Sex: Male

DRUGS (4)
  1. SINGULAIR [Suspect]
     Indication: ASTHMA
     Route: 048
     Dates: start: 20060101
  2. SINGULAIR [Suspect]
     Route: 048
  3. XOPENEX [Concomitant]
     Indication: ASTHMA
     Route: 065
  4. PULMICORT-100 [Concomitant]
     Route: 065

REACTIONS (1)
  - EPILEPSY [None]
